FAERS Safety Report 12116508 (Version 1)
Quarter: 2016Q1

REPORT INFORMATION
  Report Type: Not Available
  Country: IN (occurrence: IN)
  Receive Date: 20160225
  Receipt Date: 20160225
  Transmission Date: 20160526
  Serious: Yes (Congenital Anomaly)
  Sender: FDA-Public Use
  Company Number: IN-ANIPHARMA-2016-IN-000006

PATIENT

DRUGS (3)
  1. PHENYTOIN SODIUM (NON-SPECIFIC) [Suspect]
     Active Substance: PHENYTOIN SODIUM
     Dosage: 100 MG DAILY
     Route: 015
  2. CARBAMAZEPINE. [Suspect]
     Active Substance: CARBAMAZEPINE
     Dosage: 400 MG DAILY
     Route: 015
  3. FOLIC ACID. [Concomitant]
     Active Substance: FOLIC ACID
     Dosage: 5 MG DAILY
     Route: 015

REACTIONS (3)
  - Foetal exposure during pregnancy [Unknown]
  - Facial paralysis [Unknown]
  - Ear malformation [Not Recovered/Not Resolved]
